FAERS Safety Report 7913824-0 (Version None)
Quarter: 2011Q4

REPORT INFORMATION
  Report Type: 
  Country: None (occurrence: None)
  Receive Date: 20111115
  Receipt Date: 20111102
  Transmission Date: 20120403
  Serious: Yes (Other)
  Sender: FDA-Public Use
  Company Number: JP-PFIZER INC-2011266520

PATIENT
  Age: 70 Year
  Sex: Male

DRUGS (2)
  1. TRAMADOL HYDROCHLORIDE [Suspect]
     Dosage: UNK
     Dates: end: 20111101
  2. ZYVOX [Suspect]
     Dosage: 1200 MG, DAILY
     Route: 048
     Dates: start: 20111031

REACTIONS (1)
  - DELIRIUM [None]
